FAERS Safety Report 9311868 (Version 2)
Quarter: 2013Q3

REPORT INFORMATION
  Report Type: Spontaneous
  Country: ES (occurrence: ES)
  Receive Date: 20130528
  Receipt Date: 20130708
  Transmission Date: 20140515
  Serious: Yes (Hospitalization)
  Sender: FDA-Public Use
  Company Number: PHHY2013ES052278

PATIENT
  Age: 54 Year
  Sex: Male

DRUGS (3)
  1. BUPRENORPHINE [Suspect]
     Indication: PAIN
  2. METHADONE [Suspect]
     Indication: PAIN
  3. OPIOIDS [Suspect]
     Indication: PAIN

REACTIONS (16)
  - Lactic acidosis [Recovered/Resolved]
  - Vitamin B1 deficiency [Recovered/Resolved]
  - Weight decreased [Recovered/Resolved]
  - Asthenia [Recovered/Resolved]
  - Decreased appetite [Recovered/Resolved]
  - Vomiting [Recovered/Resolved]
  - Abdominal pain upper [Recovered/Resolved]
  - Cachexia [Recovered/Resolved]
  - Gastritis [Unknown]
  - Intestinal congestion [Unknown]
  - Tachypnoea [Recovered/Resolved]
  - Drug withdrawal syndrome [Unknown]
  - Dehydration [Recovered/Resolved]
  - Piloerection [Recovered/Resolved]
  - Hyperhidrosis [Recovered/Resolved]
  - Drug ineffective [Unknown]
